FAERS Safety Report 4855591-3 (Version None)
Quarter: 2005Q4

REPORT INFORMATION
  Report Type: 
  Country: None (occurrence: None)
  Receive Date: 20051216
  Receipt Date: 20051206
  Transmission Date: 20060501
  Serious: Yes (Life-Threatening, Other)
  Sender: FDA-Public Use
  Company Number: FR-BRISTOL-MYERS SQUIBB COMPANY-13207238

PATIENT
  Age: 57 Year
  Sex: Female

DRUGS (6)
  1. KENACORT [Suspect]
     Route: 030
     Dates: start: 20051021, end: 20051021
  2. MOBIC [Suspect]
     Indication: RHEUMATOID ARTHRITIS
     Dosage: PREVIOUSLY 7.5 MG/D FOR A ^LONG TIME^ INCREASED TO 15 MG DURING INFLAMMATORY RISES
     Dates: start: 20051025, end: 20051026
  3. NOVATREX [Suspect]
     Dates: start: 20051025, end: 20051025
  4. SULFASALAZINE [Concomitant]
     Dates: start: 20000501, end: 20051020
  5. MOPRAL [Concomitant]
     Dates: end: 20051027
  6. NOCTAMIDE [Concomitant]
     Dates: end: 20051027

REACTIONS (2)
  - ANGIONEUROTIC OEDEMA [None]
  - DRUG INEFFECTIVE [None]
